FAERS Safety Report 6355974-9 (Version None)
Quarter: 2009Q3

REPORT INFORMATION
  Report Type: 
  Country: None (occurrence: None)
  Receive Date: 20090915
  Receipt Date: 20090911
  Transmission Date: 20100115
  Serious: Yes (Hospitalization)
  Sender: FDA-Public Use
  Company Number: FR-ROCHE-656005

PATIENT
  Sex: Female

DRUGS (8)
  1. ROCEPHIN [Suspect]
     Indication: PULMONARY SEPSIS
     Dosage: STRENGTH: 1 GRAM/10 ML
     Route: 042
     Dates: start: 20090620, end: 20090627
  2. PREVISCAN [Suspect]
     Route: 048
  3. PREVISCAN [Suspect]
     Dosage: DOSE: ACCORDING TO INR
     Route: 048
     Dates: start: 20090621, end: 20090627
  4. SOLU-MEDROL [Suspect]
     Indication: PULMONARY SEPSIS
     Dosage: STRENGTH: 20 MG/2 ML
     Route: 042
     Dates: start: 20090620, end: 20090627
  5. INEXIUM [Concomitant]
     Dosage: DRUG: INEXIUM 20; FREQUENCY: ONE IN THE EVENING
  6. FUROSEMIDE [Concomitant]
  7. SYMBICORT [Concomitant]
     Dosage: DRUG: SYMBICORT TURBUHALER 400/12: 2 PUFFS A DAY; FORM: PUFF
  8. OXYGEN [Concomitant]
     Dosage: OXYGEN (3 LITER/MIN, 16 H/24)

REACTIONS (1)
  - HAEMATOMA [None]
